FAERS Safety Report 18757396 (Version 1)
Quarter: 2021Q1

REPORT INFORMATION
  Report Type: Spontaneous
  Country: DE (occurrence: DE)
  Receive Date: 20210119
  Receipt Date: 20210119
  Transmission Date: 20210419
  Serious: Yes (Other)
  Sender: FDA-Public Use
  Company Number: DE-GLENMARK PHARMACEUTICALS-2021GMK051609

PATIENT

DRUGS (2)
  1. EZETIMIB/SIMVASTATIN GLENMARK 10 MG/20 MG TABLETTEN [Suspect]
     Active Substance: EZETIMIBE\SIMVASTATIN
     Indication: PRODUCT USED FOR UNKNOWN INDICATION
     Dosage: 1 DOSAGE FORM, QD (1 TABLET/DAY)
     Route: 065
     Dates: start: 20201228, end: 20201228
  2. EZETIMIB/SIMVASTATIN GLENMARK 10 MG/20 MG TABLETTEN [Suspect]
     Active Substance: EZETIMIBE\SIMVASTATIN
     Dosage: 0.5 DOSAGE FORM, QD (? TABLET/DAY)
     Route: 065
     Dates: start: 20201229, end: 20201230

REACTIONS (9)
  - Headache [Recovered/Resolved]
  - Somnolence [Recovered/Resolved]
  - Visual impairment [Recovered/Resolved]
  - Nightmare [Recovered/Resolved]
  - Dizziness [Recovered/Resolved]
  - Treatment noncompliance [Unknown]
  - Wrong technique in product usage process [Unknown]
  - Product administration error [Unknown]
  - Insomnia [Recovered/Resolved]

NARRATIVE: CASE EVENT DATE: 20201228
